FAERS Safety Report 8101128-5 (Version None)
Quarter: 2012Q1

REPORT INFORMATION
  Report Type: 
  Country: None (occurrence: None)
  Receive Date: 20120129
  Receipt Date: 20111024
  Transmission Date: 20120608
  Serious: Yes (Hospitalization)
  Sender: FDA-Public Use
  Company Number: US-ABBOTT-11P-163-0863606-00

PATIENT
  Age: 40 Year
  Sex: Male

DRUGS (8)
  1. HUMIRA [Suspect]
     Dates: start: 20111014, end: 20111014
  2. HUMIRA [Suspect]
  3. CLONAZEPAM [Concomitant]
     Indication: ANXIETY
     Dosage: ONCE DAILY AT BEDTIME
  4. ZOLOFT [Concomitant]
     Indication: DEPRESSION
  5. ZOLOFT [Concomitant]
     Indication: ANXIETY
  6. HUMIRA [Suspect]
     Indication: CROHN'S DISEASE
     Dosage: LOADING DOSE
     Dates: start: 20110928, end: 20110928
  7. ENTOCORT EC [Concomitant]
     Indication: CROHN'S DISEASE
     Dosage: 30MG TWO TABLETS DAILY
  8. CLONAZEPAM [Concomitant]
     Indication: INSOMNIA

REACTIONS (2)
  - HEADACHE [None]
  - INCORRECT DOSE ADMINISTERED [None]
